APPROVED DRUG PRODUCT: ZAVESCA
Active Ingredient: MIGLUSTAT
Strength: 100MG
Dosage Form/Route: CAPSULE;ORAL
Application: N021348 | Product #001 | TE Code: AB
Applicant: ACTELION PHARMACEUTICALS US INC
Approved: Jul 31, 2003 | RLD: Yes | RS: Yes | Type: RX